FAERS Safety Report 8168318-7 (Version None)
Quarter: 2012Q1

REPORT INFORMATION
  Report Type: 
  Country: None (occurrence: None)
  Receive Date: 20120227
  Receipt Date: 20120220
  Transmission Date: 20120608
  Serious: Yes (Other)
  Sender: FDA-Public Use
  Company Number: US-MERCK-1202USA00937

PATIENT
  Age: 65 Year
  Sex: Female

DRUGS (1)
  1. FOSAMAX [Suspect]
     Route: 048
     Dates: start: 20040101, end: 20110801

REACTIONS (5)
  - DRUG INEFFECTIVE [None]
  - FRACTURED SACRUM [None]
  - MEDICATION ERROR [None]
  - SPINAL FRACTURE [None]
  - ANGIOPATHY [None]
